FAERS Safety Report 22389276 (Version 4)
Quarter: 2023Q2

REPORT INFORMATION
  Report Type: Spontaneous
  Country: US (occurrence: US)
  Receive Date: 20230531
  Receipt Date: 20230606
  Transmission Date: 20230721
  Serious: No
  Sender: FDA-Public Use
  Company Number: US-Dermavant-000610

PATIENT
  Age: 30 Year
  Sex: Female

DRUGS (1)
  1. VTAMA [Suspect]
     Active Substance: TAPINAROF
     Indication: Psoriasis
     Dosage: AREA OF APPLICATION: CHEEK FOR 2 DAYS
     Route: 061

REACTIONS (6)
  - Application site pruritus [Recovered/Resolved]
  - Pain [Unknown]
  - Drug ineffective [Unknown]
  - Folliculitis [Recovered/Resolved]
  - Rash [Recovered/Resolved]
  - Swelling [Unknown]
